FAERS Safety Report 8802133 (Version 1)
Quarter: 2012Q4

REPORT INFORMATION
  Report Type: 
  Country: CA (occurrence: CA)
  Receive Date: 20120921
  Receipt Date: 20120921
  Transmission Date: 20130627
  Serious: Yes (Death)
  Sender: FDA-Public Use
  Company Number: PHHY2012CA081983

PATIENT

DRUGS (8)
  1. CICLOSPORIN [Suspect]
     Indication: PROPHYLAXIS AGAINST GRAFT VERSUS HOST DISEASE
  2. CICLOSPORIN [Suspect]
     Indication: STEM CELL TRANSPLANT
  3. FLUDARABINE [Concomitant]
     Dosage: 50 mg/m2/ day
     Route: 042
  4. METHOTREXATE [Concomitant]
     Indication: PROPHYLAXIS AGAINST GRAFT VERSUS HOST DISEASE
  5. LEUCOVORIN CALCIUM [Concomitant]
     Indication: PROPHYLAXIS AGAINST GRAFT VERSUS HOST DISEASE
  6. ACICLOVIR [Concomitant]
     Indication: ANTIVIRAL PROPHYLAXIS
  7. BUSULFAN [Concomitant]
     Dosage: 3.2 mg/kg/ day
     Route: 042
  8. ANTITHYMOCYTE IMMUNOGLOBULIN [Suspect]
     Indication: PROPHYLAXIS AGAINST GRAFT VERSUS HOST DISEASE
     Dosage: 4.5 mg/kg, UNK

REACTIONS (1)
  - Post transplant lymphoproliferative disorder [Fatal]
